FAERS Safety Report 8916448 (Version 1)
Quarter: 2012Q4

REPORT INFORMATION
  Report Type: 
  Country: US (occurrence: US)
  Receive Date: 20121120
  Receipt Date: 20121120
  Transmission Date: 20130627
  Serious: Yes (Hospitalization)
  Sender: FDA-Public Use
  Company Number: US-BAYER-2012-119398

PATIENT
  Age: 31 Year
  Sex: Female
  Weight: 123 kg

DRUGS (2)
  1. BEYAZ [Suspect]
     Dosage: UNK
     Dates: start: 20110411, end: 20120404
  2. PERCOCET [Concomitant]

REACTIONS (2)
  - Pulmonary embolism [None]
  - Deep vein thrombosis [None]
